FAERS Safety Report 10682829 (Version 2)
Quarter: 2015Q1

REPORT INFORMATION
  Report Type: Spontaneous
  Country: US (occurrence: US)
  Receive Date: 20141230
  Receipt Date: 20150122
  Transmission Date: 20150720
  Serious: Yes (Other)
  Sender: FDA-Public Use
  Company Number: US-009507513-1412USA011634

PATIENT
  Age: 18 Year
  Sex: Female
  Weight: 46.71 kg

DRUGS (1)
  1. IMPLANON [Suspect]
     Active Substance: ETONOGESTREL
     Indication: CONTRACEPTION
     Dosage: 3 YEAR IMPLANT, LEFT ARM
     Route: 059
     Dates: start: 20111222

REACTIONS (19)
  - Pollakiuria [Unknown]
  - Breast tenderness [Unknown]
  - Infrequent bowel movements [Unknown]
  - Chest discomfort [Unknown]
  - Eye pain [Unknown]
  - Dizziness [Unknown]
  - Hypertensive crisis [Unknown]
  - Mania [Unknown]
  - Herpes zoster [Unknown]
  - Abdominal pain lower [Unknown]
  - Device dislocation [Not Recovered/Not Resolved]
  - Hypoaesthesia [Unknown]
  - Adnexa uteri pain [Unknown]
  - Lymphadenopathy [Unknown]
  - Depression [Unknown]
  - Headache [Unknown]
  - Incorrect drug administration duration [Unknown]
  - Limb discomfort [Unknown]
  - Acne [Unknown]

NARRATIVE: CASE EVENT DATE: 2013
